FAERS Safety Report 10486791 (Version 2)
Quarter: 2014Q4

REPORT INFORMATION
  Report Type: Spontaneous
  Country: GR (occurrence: GR)
  Receive Date: 20141001
  Receipt Date: 20141014
  Transmission Date: 20150528
  Serious: Yes (Death)
  Sender: FDA-Public Use
  Company Number: GR-SA-2014SA134679

PATIENT
  Age: 44 Year
  Sex: Female

DRUGS (3)
  1. ARAVA [Suspect]
     Active Substance: LEFLUNOMIDE
     Indication: ARTHRITIS
     Route: 065
     Dates: end: 20140810
  2. DEPAKINE [Concomitant]
     Active Substance: VALPROATE SODIUM
     Indication: DEPRESSION
  3. ZYPREXA [Concomitant]
     Active Substance: OLANZAPINE
     Indication: DEPRESSION

REACTIONS (2)
  - Malaise [Unknown]
  - Heat stroke [Fatal]
